FAERS Safety Report 7634014-5 (Version None)
Quarter: 2011Q3

REPORT INFORMATION
  Report Type: 
  Country: None (occurrence: None)
  Receive Date: 20110714
  Receipt Date: 20110328
  Transmission Date: 20111222
  Serious: Yes (Other)
  Sender: FDA-Public Use
  Company Number: 2011SP014113

PATIENT

DRUGS (2)
  1. HEPARIN [Concomitant]
  2. INTEGRILIN [Suspect]
     Indication: PERCUTANEOUS CORONARY INTERVENTION
     Dosage: IV
     Route: 042

REACTIONS (1)
  - THROMBOCYTOPENIA [None]
